FAERS Safety Report 11052279 (Version 2)
Quarter: 2015Q2

REPORT INFORMATION
  Report Type: Spontaneous
  Country: BR (occurrence: BR)
  Receive Date: 20150421
  Receipt Date: 20150515
  Transmission Date: 20150821
  Serious: Yes (Hospitalization)
  Sender: FDA-Public Use
  Company Number: PHHY2015BR046233

PATIENT
  Age: 22 Year
  Sex: Female
  Weight: 62 kg

DRUGS (8)
  1. CLONAZEPAM. [Concomitant]
     Active Substance: CLONAZEPAM
     Indication: FEAR
  2. CLONAZEPAM. [Concomitant]
     Active Substance: CLONAZEPAM
     Indication: PANIC ATTACK
     Dosage: 1 DF, BID
     Route: 065
  3. PROMETHAZINE HYDROCHLORIDE. [Concomitant]
     Active Substance: PROMETHAZINE HYDROCHLORIDE
     Indication: ANXIETY
     Route: 065
  4. PROMETHAZINE HYDROCHLORIDE. [Concomitant]
     Active Substance: PROMETHAZINE HYDROCHLORIDE
     Indication: DEPRESSION
  5. RISPERIDONA [Concomitant]
     Active Substance: RISPERIDONE
     Indication: DEPRESSION
  6. CARBAMAZEPINA [Concomitant]
     Active Substance: CARBAMAZEPINE
     Indication: MILD MENTAL RETARDATION
     Dosage: 1 DF, BID
     Route: 065
  7. LEPONEX [Suspect]
     Active Substance: CLOZAPINE
     Indication: PSYCHOTIC DISORDER
     Dosage: 1 DF, BID(IN THE MORNING AND AT NIGHT)
     Route: 065
  8. RISPERIDONA [Concomitant]
     Active Substance: RISPERIDONE
     Indication: ANXIETY
     Dosage: 1 DF, BID
     Route: 065

REACTIONS (4)
  - Crying [Recovering/Resolving]
  - Mental disorder [Recovering/Resolving]
  - Screaming [Recovering/Resolving]
  - Abnormal behaviour [Recovering/Resolving]
